FAERS Safety Report 8479201-1 (Version None)
Quarter: 2012Q2

REPORT INFORMATION
  Report Type: 
  Country: None (occurrence: None)
  Receive Date: 20120402
  Receipt Date: 20111214
  Transmission Date: 20120825
  Serious: Yes (Other)
  Sender: FDA-Public Use
  Company Number: A-US2011-57126

PATIENT
  Age: 53 Year
  Sex: Male
  Weight: 83 kg

DRUGS (12)
  1. NIFEDIPINE [Concomitant]
  2. LORTAB [Concomitant]
  3. LANSOPRAZOLE [Concomitant]
  4. GABAPENTIN [Concomitant]
  5. FLUOXETINE [Concomitant]
  6. LOSARTAN POTASSIUM [Concomitant]
  7. TRACLEER [Suspect]
     Indication: PULMONARY ARTERIAL HYPERTENSION
     Dosage: 62.5 MG, BID, ORAL
     Route: 048
     Dates: start: 20110808, end: 20111115
  8. METOCLOPRAMIDE [Concomitant]
  9. ALLEGRA [Concomitant]
  10. IBUPROFEN [Concomitant]
  11. PENTOXIFILLINE (PENTOXIFILLINE) [Concomitant]
  12. ASPIRIN [Concomitant]

REACTIONS (4)
  - ALANINE AMINOTRANSFERASE INCREASED [None]
  - BLOOD ALKALINE PHOSPHATASE INCREASED [None]
  - LIVER FUNCTION TEST ABNORMAL [None]
  - ASPARTATE AMINOTRANSFERASE INCREASED [None]
